FAERS Safety Report 9938759 (Version 3)
Quarter: 2014Q2

REPORT INFORMATION
  Report Type: Spontaneous
  Country: US (occurrence: US)
  Receive Date: 20140303
  Receipt Date: 20140516
  Transmission Date: 20141212
  Serious: No
  Sender: FDA-Public Use
  Company Number: US-PFIZER INC-2014055199

PATIENT
  Age: 68 Year
  Sex: Female
  Weight: 57.6 kg

DRUGS (6)
  1. LYRICA [Suspect]
     Indication: FIBROMYALGIA
     Dosage: 75 MG, DAILY
     Dates: start: 201310, end: 20140124
  2. LYRICA [Suspect]
     Indication: GROIN PAIN
     Dosage: 125 MG, 1X/DAY
     Route: 048
     Dates: start: 201310
  3. LYRICA [Suspect]
     Indication: PELVIC PAIN
     Dosage: 150 MG, DAILY
     Dates: start: 20140205
  4. LYRICA [Suspect]
     Dosage: 125 MG, 1X/DAY
  5. ARMOUR THYROID [Concomitant]
     Indication: HYPOTHYROIDISM
     Dosage: 15 MG, DAILY
  6. SIMVASTATIN [Concomitant]
     Indication: BLOOD CHOLESTEROL INCREASED
     Dosage: UNK

REACTIONS (18)
  - Drug withdrawal syndrome [Recovering/Resolving]
  - Headache [Recovering/Resolving]
  - Nausea [Recovering/Resolving]
  - Diarrhoea [Recovering/Resolving]
  - Abnormal dreams [Recovering/Resolving]
  - Panic reaction [Recovering/Resolving]
  - Dizziness [Recovering/Resolving]
  - Insomnia [Recovering/Resolving]
  - Dehydration [Unknown]
  - Drug withdrawal syndrome [Unknown]
  - Sedation [Unknown]
  - Feeling abnormal [Unknown]
  - Insomnia [Unknown]
  - Gait disturbance [Unknown]
  - Hypokinesia [Unknown]
  - Crying [Unknown]
  - Anxiety [Unknown]
  - Activities of daily living impaired [Unknown]
